FAERS Safety Report 4678559-9 (Version None)
Quarter: 2005Q2

REPORT INFORMATION
  Report Type: 
  Country: None (occurrence: None)
  Receive Date: 20050601
  Receipt Date: 20050525
  Transmission Date: 20051028
  Serious: Yes (Death)
  Sender: FDA-Public Use
  Company Number: US-MERCK-0505USA02971

PATIENT
  Age: 60 Year
  Sex: Female

DRUGS (1)
  1. VIOXX [Suspect]
     Indication: ARTHRITIS
     Route: 048
     Dates: start: 20010401, end: 20010101

REACTIONS (6)
  - HYPERHIDROSIS [None]
  - HYPOVENTILATION [None]
  - LETHARGY [None]
  - PULMONARY THROMBOSIS [None]
  - TACHYCARDIA [None]
  - THROMBOSIS [None]
